FAERS Safety Report 8321925-0 (Version None)
Quarter: 2012Q2

REPORT INFORMATION
  Report Type: 
  Country: None (occurrence: None)
  Receive Date: 20120430
  Receipt Date: 20091201
  Transmission Date: 20120825
  Serious: No
  Sender: FDA-Public Use
  Company Number: US-TEVA-2009029435

PATIENT
  Sex: Male

DRUGS (7)
  1. ORUDIS [Concomitant]
     Indication: MIGRAINE
     Dosage: 50 MILLIGRAM;
     Route: 048
     Dates: start: 20081201
  2. ANDROGEL [Concomitant]
     Indication: ANDROGEN DEFICIENCY
     Dosage: 5 GRAM;
     Route: 061
     Dates: start: 20020101
  3. PRISTIQ [Concomitant]
     Indication: DEPRESSION
     Dosage: 50 MILLIGRAM;
     Route: 048
     Dates: start: 20090901
  4. DARVOCET-N 50 [Concomitant]
     Indication: MIGRAINE
     Route: 048
     Dates: start: 20090601
  5. LANTUS [Concomitant]
     Indication: DIABETES MELLITUS
     Route: 058
     Dates: start: 20070101
  6. HUMALOG [Concomitant]
     Indication: DIABETES MELLITUS
     Route: 058
     Dates: start: 20070101
  7. NUVIGIL [Suspect]
     Indication: SLEEP APNOEA SYNDROME
     Dosage: 250 MILLIGRAM;
     Route: 048
     Dates: start: 20091128

REACTIONS (1)
  - HEADACHE [None]
